FAERS Safety Report 5515559-0 (Version None)
Quarter: 2007Q4

REPORT INFORMATION
  Report Type: 
  Country: None (occurrence: None)
  Receive Date: 20071113
  Receipt Date: 20070605
  Transmission Date: 20080405
  Serious: No
  Sender: FDA-Public Use
  Company Number: A0654249A

PATIENT
  Sex: Female

DRUGS (3)
  1. COREG [Suspect]
     Indication: HYPERTENSION
     Dosage: 1TAB TWICE PER DAY
     Route: 048
  2. BENICAR [Concomitant]
  3. ZOLOFT [Concomitant]

REACTIONS (2)
  - BACK PAIN [None]
  - HYPOAESTHESIA [None]
